FAERS Safety Report 5255635-3 (Version None)
Quarter: 2007Q1

REPORT INFORMATION
  Report Type: 
  Country: None (occurrence: None)
  Receive Date: 20070305
  Receipt Date: 20070221
  Transmission Date: 20070707
  Serious: Yes (Death, Hospitalization, Other)
  Sender: FDA-Public Use
  Company Number: US-PFIZER INC-2005064329

PATIENT
  Sex: Male
  Weight: 86.2 kg

DRUGS (3)
  1. BEXTRA [Suspect]
     Indication: INFLAMMATION
     Dates: start: 20020601, end: 20030303
  2. BEXTRA [Suspect]
     Indication: PAIN
  3. BEXTRA [Suspect]
     Indication: ARTHRITIS

REACTIONS (1)
  - MYOCARDIAL INFARCTION [None]
